FAERS Safety Report 26104366 (Version 2)
Quarter: 2025Q4

REPORT INFORMATION
  Report Type: Spontaneous
  Country: JP (occurrence: JP)
  Receive Date: 20251130
  Receipt Date: 20251203
  Transmission Date: 20260117
  Serious: Yes (Other)
  Sender: ALEXION PHARMACEUTICALS
  Company Number: JP-ASTRAZENECA-202511JPN019190JP

PATIENT
  Age: 71 Year
  Sex: Female

DRUGS (2)
  1. IMFINZI [Suspect]
     Active Substance: DURVALUMAB
     Indication: Endometrial cancer
     Dosage: UNK
     Route: 065
  2. LYNPARZA [Suspect]
     Active Substance: OLAPARIB
     Indication: Endometrial cancer
     Dosage: UNK
     Route: 065

REACTIONS (2)
  - Neuropathy peripheral [Unknown]
  - Anaemia [Unknown]
